FAERS Safety Report 5360177-0 (Version None)
Quarter: 2007Q2

REPORT INFORMATION
  Report Type: 
  Country: None (occurrence: None)
  Receive Date: 20070618
  Receipt Date: 20070614
  Transmission Date: 20071010
  Serious: Yes (Death)
  Sender: FDA-Public Use
  Company Number: PHEH2007US08738

PATIENT
  Age: 58 Year
  Sex: Male

DRUGS (1)
  1. DIOVAN HCT [Suspect]
     Dosage: 160 UNK, QD
     Route: 048

REACTIONS (4)
  - CEREBROVASCULAR ACCIDENT [None]
  - DISSEMINATED INTRAVASCULAR COAGULATION [None]
  - FALL [None]
  - SKULL FRACTURE [None]
